FAERS Safety Report 21950648 (Version 2)
Quarter: 2023Q1

REPORT INFORMATION
  Report Type: Spontaneous
  Country: ES (occurrence: ES)
  Receive Date: 20230203
  Receipt Date: 20230228
  Transmission Date: 20230417
  Serious: Yes (Other)
  Sender: FDA-Public Use
  Company Number: ES-TEVA-2023-ES-2851787

PATIENT
  Age: 29 Year
  Sex: Male

DRUGS (6)
  1. CARMUSTINE [Suspect]
     Active Substance: CARMUSTINE
     Indication: Immunosuppressant drug therapy
     Dosage: BEA REGIMEN CONDITIONING
     Route: 065
  2. CARMUSTINE [Suspect]
     Active Substance: CARMUSTINE
     Indication: Chemotherapy
  3. ETOPOSIDE [Suspect]
     Active Substance: ETOPOSIDE
     Indication: Immunosuppressant drug therapy
     Dosage: BEA REGIMEN CONDITIONING
     Route: 065
  4. ETOPOSIDE [Suspect]
     Active Substance: ETOPOSIDE
     Indication: Chemotherapy
  5. CYTARABINE [Suspect]
     Active Substance: CYTARABINE
     Indication: Immunosuppressant drug therapy
     Dosage: BEA REGIMEN CONDITIONING
     Route: 065
  6. CYTARABINE [Suspect]
     Active Substance: CYTARABINE
     Indication: Chemotherapy

REACTIONS (1)
  - Venoocclusive liver disease [Recovering/Resolving]
